FAERS Safety Report 17898989 (Version 5)
Quarter: 2025Q1

REPORT INFORMATION
  Report Type: Report from Study
  Country: ES (occurrence: ES)
  Receive Date: 20200615
  Receipt Date: 20250311
  Transmission Date: 20250409
  Serious: Yes (Life-Threatening, Hospitalization, Other)
  Sender: AUROBINDO
  Company Number: ES-AUROBINDO-AUR-APL-2018-005733

PATIENT
  Age: 1 Year
  Sex: Female

DRUGS (4)
  1. VALGANCICLOVIR [Interacting]
     Active Substance: VALGANCICLOVIR
     Indication: Product used for unknown indication
     Route: 065
  2. MYCOPHENOLIC ACID [Interacting]
     Active Substance: MYCOPHENOLIC ACID
     Indication: Immunosuppressant drug therapy
     Dosage: 120 MILLIGRAM, TWO TIMES A DAY
     Route: 065
  3. MYCOPHENOLIC ACID [Interacting]
     Active Substance: MYCOPHENOLIC ACID
     Indication: Heart transplant
     Route: 065
  4. MYCOPHENOLIC ACID [Interacting]
     Active Substance: MYCOPHENOLIC ACID
     Dosage: 12 MILLIGRAM, TWO TIMES A DAY
     Route: 065

REACTIONS (3)
  - Agranulocytosis [Recovered/Resolved]
  - Toxicity to various agents [Recovered/Resolved]
  - Drug interaction [Recovered/Resolved]
